FAERS Safety Report 12462118 (Version 4)
Quarter: 2016Q3

REPORT INFORMATION
  Report Type: Report from Study
  Country: UY (occurrence: UY)
  Receive Date: 20160613
  Receipt Date: 20160810
  Transmission Date: 20161109
  Serious: Yes (Hospitalization)
  Sender: FDA-Public Use
  Company Number: UY-ABBVIE-16K-168-1565843-00

PATIENT
  Age: 53 Year
  Sex: Female

DRUGS (1)
  1. HUMIRA [Suspect]
     Active Substance: ADALIMUMAB
     Indication: RHEUMATOID ARTHRITIS
     Route: 058
     Dates: start: 20140527, end: 20160421

REACTIONS (8)
  - Nausea [Unknown]
  - Back pain [Recovered/Resolved]
  - Renal colic [Recovered/Resolved]
  - Postoperative wound infection [Recovered/Resolved]
  - Anaemia [Recovered/Resolved]
  - Abdominal pain upper [Not Recovered/Not Resolved]
  - Cholelithiasis [Recovering/Resolving]
  - Malaise [Not Recovered/Not Resolved]

NARRATIVE: CASE EVENT DATE: 20160115
